FAERS Safety Report 20094181 (Version 5)
Quarter: 2022Q2

REPORT INFORMATION
  Report Type: Report from Study
  Country: US (occurrence: US)
  Receive Date: 20211122
  Receipt Date: 20220405
  Transmission Date: 20220721
  Serious: Yes (Hospitalization)
  Sender: FDA-Public Use
  Company Number: US-ABBVIE-21K-163-4168157-00

PATIENT
  Sex: Male

DRUGS (2)
  1. IMBRUVICA [Suspect]
     Active Substance: IBRUTINIB
     Indication: Chronic lymphocytic leukaemia
     Route: 048
     Dates: start: 20211111
  2. METFORMIN [Concomitant]
     Active Substance: METFORMIN HYDROCHLORIDE
     Indication: Product used for unknown indication

REACTIONS (17)
  - Transfusion [Unknown]
  - Mouth haemorrhage [Recovering/Resolving]
  - Gout [Recovered/Resolved]
  - Blood potassium increased [Unknown]
  - Insomnia [Recovered/Resolved]
  - Skin laceration [Unknown]
  - Ulcer [Unknown]
  - Impaired healing [Unknown]
  - Pain in extremity [Unknown]
  - Peripheral swelling [Unknown]
  - Haemoglobin decreased [Unknown]
  - Heart sounds abnormal [Unknown]
  - Oral blood blister [Recovering/Resolving]
  - Joint swelling [Unknown]
  - Blood blister [Unknown]
  - Seasonal allergy [Unknown]
  - Weight decreased [Unknown]

NARRATIVE: CASE EVENT DATE: 20210101
